FAERS Safety Report 18753350 (Version 1)
Quarter: 2021Q1

REPORT INFORMATION
  Report Type: Spontaneous
  Country: US (occurrence: US)
  Receive Date: 20210118
  Receipt Date: 20210118
  Transmission Date: 20210419
  Serious: Yes (Other)
  Sender: FDA-Public Use
  Company Number: US-TEVA-2021-US-1868747

PATIENT
  Sex: Female

DRUGS (1)
  1. LABETALOL HYDROCHLORIDE. [Suspect]
     Active Substance: LABETALOL HYDROCHLORIDE
     Indication: BLOOD PRESSURE MEASUREMENT
     Route: 065

REACTIONS (7)
  - Urticaria [Unknown]
  - Feeling abnormal [Unknown]
  - Cerebrovascular accident [Recovered/Resolved]
  - Stress [Not Recovered/Not Resolved]
  - Nausea [Unknown]
  - Dizziness [Recovered/Resolved]
  - Diarrhoea [Unknown]
